FAERS Safety Report 5408348-9 (Version None)
Quarter: 2007Q3

REPORT INFORMATION
  Report Type: 
  Country: None (occurrence: None)
  Receive Date: 20070803
  Receipt Date: 20070718
  Transmission Date: 20080115
  Serious: Yes (Other)
  Sender: FDA-Public Use
  Company Number: 2007RR-08797

PATIENT
  Age: 40 Year
  Sex: Male

DRUGS (7)
  1. EFAVIRENZ [Suspect]
     Indication: HIV INFECTION
     Dosage: 600 MG
  2. LAMIVUDINE [Suspect]
     Indication: HIV INFECTION
     Dosage: 150 MG
  3. ZIDOVUDINE [Suspect]
     Indication: HIV INFECTION
     Dosage: 300 MG
  4. RIFAMPICIN [Concomitant]
  5. ISONIAZID [Concomitant]
  6. PYRAZINAMIDE [Concomitant]
  7. ETHAMBUTOL HYDROCHLORIDE [Concomitant]

REACTIONS (4)
  - BLINDNESS UNILATERAL [None]
  - COUGH [None]
  - PAIN [None]
  - UVEITIS [None]
